FAERS Safety Report 17064858 (Version 3)
Quarter: 2020Q2

REPORT INFORMATION
  Report Type: Report from Study
  Country: FR (occurrence: FR)
  Receive Date: 20191122
  Receipt Date: 20200413
  Transmission Date: 20200713
  Serious: Yes (Hospitalization, Other)
  Sender: FDA-Public Use
  Company Number: FR-BRISTOL-MYERS SQUIBB COMPANY-BMS-2019-109083

PATIENT
  Age: 64 Year
  Sex: Female

DRUGS (1)
  1. NIVOLUMAB [Suspect]
     Active Substance: NIVOLUMAB
     Indication: LUNG NEOPLASM MALIGNANT
     Dosage: 168 MG FOR EVERY 15 DAYS
     Route: 042
     Dates: start: 20171003, end: 20190523

REACTIONS (2)
  - Off label use [Unknown]
  - Pericarditis [Recovered/Resolved]

NARRATIVE: CASE EVENT DATE: 20190516
